FAERS Safety Report 9648900 (Version 1)
Quarter: 2013Q4

REPORT INFORMATION
  Report Type: Spontaneous
  Country: US (occurrence: None)
  Receive Date: 20131025
  Receipt Date: 20131025
  Transmission Date: 20140711
  Serious: Yes (Hospitalization)
  Sender: FDA-Public Use
  Company Number: None

PATIENT
  Age: 54 Year
  Sex: Female
  Weight: 54.4 kg

DRUGS (1)
  1. ZYPREXA [Suspect]
     Dates: start: 20130507, end: 20130527

REACTIONS (8)
  - Visual impairment [None]
  - Anxiety [None]
  - Palpitations [None]
  - Dyspnoea [None]
  - Fear [None]
  - Asthenia [None]
  - Decreased appetite [None]
  - Activities of daily living impaired [None]
